FAERS Safety Report 5414795-1 (Version None)
Quarter: 2007Q3

REPORT INFORMATION
  Report Type: 
  Country: None (occurrence: None)
  Receive Date: 20070813
  Receipt Date: 20070804
  Transmission Date: 20080115
  Serious: Yes (Other)
  Sender: FDA-Public Use
  Company Number: 2007SP015732

PATIENT
  Age: 45 Year
  Sex: Male

DRUGS (4)
  1. PEG-INTRON [Suspect]
     Indication: HEPATITIS C
     Dosage: SC
     Route: 058
     Dates: start: 20070420
  2. RIBAVIRIN [Suspect]
     Indication: HEPATITIS C
     Dosage: PO
     Route: 048
     Dates: start: 20070420
  3. CELEXA [Concomitant]
  4. INSULIN [Concomitant]

REACTIONS (12)
  - AGGRESSION [None]
  - ANGER [None]
  - ANXIETY [None]
  - DISORIENTATION [None]
  - LOSS OF CONSCIOUSNESS [None]
  - MOOD SWINGS [None]
  - MYALGIA [None]
  - PAIN [None]
  - PHARYNGEAL OEDEMA [None]
  - RED BLOOD CELL COUNT DECREASED [None]
  - SOMNAMBULISM [None]
  - SWOLLEN TONGUE [None]
